FAERS Safety Report 7423342-4 (Version None)
Quarter: 2011Q2

REPORT INFORMATION
  Report Type: 
  Country: None (occurrence: None)
  Receive Date: 20110419
  Receipt Date: 20110405
  Transmission Date: 20111010
  Serious: Yes (Hospitalization, Other)
  Sender: FDA-Public Use
  Company Number: PHHY2011US29038

PATIENT
  Sex: Female

DRUGS (1)
  1. ZELNORM [Suspect]
     Route: 048

REACTIONS (2)
  - CONVULSION [None]
  - IRRITABLE BOWEL SYNDROME [None]
